FAERS Safety Report 8504073-6 (Version None)
Quarter: 2012Q2

REPORT INFORMATION
  Report Type: 
  Country: None (occurrence: None)
  Receive Date: 20120405
  Receipt Date: 20091027
  Transmission Date: 20120825
  Serious: Yes (Life-Threatening)
  Sender: FDA-Public Use
  Company Number: PHEH2009US14648

PATIENT
  Age: 84 Year
  Sex: Female

DRUGS (5)
  1. ANTIHYPERTENSIVE DRUGS (NO INGREDIENTS/SUBSTANCES) [Concomitant]
  2. RECLAST [Suspect]
     Dosage: INFUSION
     Dates: start: 20091014, end: 20091014
  3. VITAMIN D [Concomitant]
  4. ACETAMINOPHEN [Concomitant]
  5. CALCIUM CARBONATE [Concomitant]

REACTIONS (3)
  - PAIN IN EXTREMITY [None]
  - NASOPHARYNGITIS [None]
  - RHINORRHOEA [None]
